FAERS Safety Report 4736313-3 (Version None)
Quarter: 2005Q3

REPORT INFORMATION
  Report Type: 
  Country: None (occurrence: None)
  Receive Date: 20050808
  Receipt Date: 20050706
  Transmission Date: 20060218
  Serious: Yes (Hospitalization, Other)
  Sender: FDA-Public Use
  Company Number: 2005UW10320

PATIENT
  Age: 19330 Day
  Sex: Female
  Weight: 122.3 kg

DRUGS (5)
  1. SEROQUEL [Suspect]
     Indication: SCHIZOPHRENIA
     Route: 048
     Dates: start: 20041221, end: 20050601
  2. EFFEXOR [Concomitant]
     Indication: DEPRESSION
     Route: 048
     Dates: start: 20040101
  3. NEURONTIN [Concomitant]
     Indication: PAIN
     Route: 048
     Dates: start: 20040101, end: 20050519
  4. HYDROCODONE [Concomitant]
     Indication: ARTHRITIS
     Route: 048
     Dates: start: 20010101, end: 20050519
  5. RESTORIL [Concomitant]
     Indication: SLEEP DISORDER
     Dosage: 15-30 MG
     Route: 048
     Dates: start: 20040504, end: 20050519

REACTIONS (6)
  - AGITATION [None]
  - CARDIAC FAILURE CONGESTIVE [None]
  - CONDITION AGGRAVATED [None]
  - DELUSION [None]
  - GAIT DISTURBANCE [None]
  - PSYCHOTIC DISORDER [None]
